FAERS Safety Report 4733596-0 (Version None)
Quarter: 2005Q3

REPORT INFORMATION
  Report Type: 
  Country: None (occurrence: None)
  Receive Date: 20050729
  Receipt Date: 20050624
  Transmission Date: 20060218
  Serious: No
  Sender: FDA-Public Use
  Company Number: COT_0100_2005

PATIENT
  Age: 77 Year
  Sex: Male
  Weight: 103.4201 kg

DRUGS (6)
  1. VENTAVIS [Suspect]
     Indication: PULMONARY HYPERTENSION
     Dosage: 5 MCG Q3HR IH
     Route: 055
     Dates: start: 20050608
  2. ALLOPURINOL [Concomitant]
  3. TOPROL-XL [Concomitant]
  4. NORVASC [Concomitant]
  5. CARDURA [Concomitant]
  6. COUMADIN [Concomitant]

REACTIONS (1)
  - CHEST DISCOMFORT [None]
